FAERS Safety Report 5309288-6 (Version None)
Quarter: 2007Q2

REPORT INFORMATION
  Report Type: 
  Country: None (occurrence: None)
  Receive Date: 20070424
  Receipt Date: 20070424
  Transmission Date: 20071010
  Serious: Yes (Other)
  Sender: FDA-Public Use
  Company Number: None

PATIENT
  Sex: Female
  Weight: 58.9676 kg

DRUGS (2)
  1. AUGMENTIN [Suspect]
     Indication: EAR INFECTION
     Dosage: 1 TABLET TWICE DAILY PO
     Route: 048
     Dates: start: 20070416, end: 20070421
  2. AUGMENTIN [Suspect]
     Indication: SINUSITIS
     Dosage: 1 TABLET TWICE DAILY PO
     Route: 048
     Dates: start: 20070416, end: 20070421

REACTIONS (2)
  - DRUG DISPENSING ERROR [None]
  - LUNG DISORDER [None]
